FAERS Safety Report 7929987-7 (Version None)
Quarter: 2011Q4

REPORT INFORMATION
  Report Type: 
  Country: None (occurrence: None)
  Receive Date: 20111117
  Receipt Date: 20111104
  Transmission Date: 20120403
  Serious: Yes (Hospitalization)
  Sender: FDA-Public Use
  Company Number: UCM201111-000072

PATIENT
  Age: 24 Year
  Sex: Female

DRUGS (3)
  1. CETIRIZINE [Suspect]
     Dosage: 10 MG/DAY
  2. MEDROXYPROGESTERONE [Suspect]
     Dosage: DEPOT
  3. VALACYCLOVIR [Suspect]
     Indication: HERPES SIMPLEX
     Dosage: DAILY

REACTIONS (8)
  - ALCOHOL POISONING [None]
  - LACERATION [None]
  - GAIT DISTURBANCE [None]
  - SKIN DISCOLOURATION [None]
  - GRIMACING [None]
  - DYSARTHRIA [None]
  - DYSKINESIA [None]
  - DYSTONIA [None]
